FAERS Safety Report 23603647 (Version 1)
Quarter: 2024Q1

REPORT INFORMATION
  Report Type: Spontaneous
  Country: US (occurrence: US)
  Receive Date: 20240307
  Receipt Date: 20240307
  Transmission Date: 20240410
  Serious: No
  Sender: FDA-Public Use
  Company Number: US-BRISTOL-MYERS SQUIBB COMPANY-2024-026454

PATIENT
  Sex: Female

DRUGS (1)
  1. ORENCIA [Suspect]
     Active Substance: ABATACEPT
     Indication: Autoimmune disorder
     Route: 058
     Dates: start: 202107

REACTIONS (3)
  - Needle issue [Unknown]
  - Syringe issue [Unknown]
  - Off label use [Unknown]
